FAERS Safety Report 5341496-0 (Version None)
Quarter: 2007Q2

REPORT INFORMATION
  Report Type: 
  Country: None (occurrence: None)
  Receive Date: 20070601
  Receipt Date: 20070524
  Transmission Date: 20071010
  Serious: Yes (Life-Threatening, Hospitalization)
  Sender: FDA-Public Use
  Company Number: PHFR2007IE01718

PATIENT
  Age: 35 Year
  Sex: Male

DRUGS (2)
  1. CLOZARIL [Suspect]
     Indication: SCHIZOPHRENIA
     Dosage: 200MG NOCTE
     Route: 048
     Dates: start: 20050628
  2. EFEXOR                                  /BEL/ [Concomitant]
     Route: 065

REACTIONS (10)
  - COUGH [None]
  - HYPERTENSION [None]
  - HYPOXIA [None]
  - OBESITY [None]
  - PNEUMONIA PRIMARY ATYPICAL [None]
  - PYREXIA [None]
  - SLEEP APNOEA SYNDROME [None]
  - TACHYCARDIA [None]
  - VENTRICULAR HYPERTROPHY [None]
  - WHITE BLOOD CELL COUNT INCREASED [None]
